FAERS Safety Report 9900319 (Version 5)
Quarter: 2014Q4

REPORT INFORMATION
  Report Type: Spontaneous
  Country: US (occurrence: US)
  Receive Date: 20140216
  Receipt Date: 20141203
  Transmission Date: 20150529
  Serious: Yes (Hospitalization, Other)
  Sender: FDA-Public Use
  Company Number: US-009507513-1402USA004148

PATIENT
  Sex: Female
  Weight: 81.63 kg

DRUGS (3)
  1. FOSAMAX [Suspect]
     Active Substance: ALENDRONATE SODIUM
     Indication: BACK INJURY
     Dosage: 70 MG, UNK
     Route: 048
     Dates: start: 1998, end: 200809
  2. CORTICOSTEROIDS (UNSPECIFIED) [Concomitant]
     Active Substance: UNSPECIFIED INGREDIENT
     Dosage: UNK
     Dates: start: 1990, end: 2013
  3. ALENDRONATE SODIUM. [Suspect]
     Active Substance: ALENDRONATE SODIUM
     Indication: BACK INJURY
     Dosage: 70 MG, QW
     Route: 048
     Dates: start: 200802, end: 201210

REACTIONS (48)
  - Angina pectoris [Not Recovered/Not Resolved]
  - Low turnover osteopathy [Unknown]
  - Hypertension [Unknown]
  - Carpal tunnel decompression [Unknown]
  - Pericarditis [Recovered/Resolved]
  - Pain [Unknown]
  - Off label use [Unknown]
  - Knee arthroplasty [Unknown]
  - Fracture [Unknown]
  - Lower limb fracture [Unknown]
  - Cataract [Unknown]
  - Oral surgery [Unknown]
  - Surgery [Unknown]
  - Lumbar spinal stenosis [Unknown]
  - Hypothyroidism [Unknown]
  - Urinary tract infection bacterial [Unknown]
  - Sleep apnoea syndrome [Unknown]
  - Back pain [Not Recovered/Not Resolved]
  - Hand fracture [Unknown]
  - Coronary artery disease [Unknown]
  - Dysuria [Unknown]
  - Neck surgery [Unknown]
  - Spinal fusion surgery [Unknown]
  - Spinal fusion surgery [Unknown]
  - Fall [Unknown]
  - Foot fracture [Unknown]
  - Lumbar vertebral fracture [Unknown]
  - Hand fracture [Unknown]
  - Joint injury [Unknown]
  - Tooth extraction [Unknown]
  - Femur fracture [Unknown]
  - Open reduction of fracture [Unknown]
  - Intervertebral disc degeneration [Unknown]
  - Spondylolisthesis [Unknown]
  - Lumbar spine flattening [Unknown]
  - Spinal fusion surgery [Unknown]
  - Myocardial infarction [Unknown]
  - Rheumatoid arthritis [Unknown]
  - Arthralgia [Not Recovered/Not Resolved]
  - Spinal laminectomy [Unknown]
  - Deep vein thrombosis [Unknown]
  - Hyperlipidaemia [Unknown]
  - Asthma [Unknown]
  - Stress fracture [Unknown]
  - Cardiac aneurysm [Unknown]
  - Respiratory disorder [Unknown]
  - Foot fracture [Unknown]
  - Arrhythmia [Unknown]

NARRATIVE: CASE EVENT DATE: 2000
